FAERS Safety Report 18155224 (Version 4)
Quarter: 2021Q3

REPORT INFORMATION
  Report Type: Spontaneous
  Country: US (occurrence: US)
  Receive Date: 20200817
  Receipt Date: 20210903
  Transmission Date: 20211014
  Serious: No
  Sender: FDA-Public Use
  Company Number: US-ALLERGAN-2026747US

PATIENT
  Sex: Male

DRUGS (2)
  1. ANDRODERM [Suspect]
     Active Substance: TESTOSTERONE
     Indication: MUSCULAR WEAKNESS
     Dosage: UNK
     Route: 062
     Dates: start: 20200708, end: 20200708
  2. ANDRODERM [Suspect]
     Active Substance: TESTOSTERONE
     Indication: MUSCULAR WEAKNESS
     Dosage: UNK
     Route: 062
     Dates: start: 20191027, end: 20200519

REACTIONS (2)
  - Drug ineffective for unapproved indication [Unknown]
  - Off label use [Unknown]
